FAERS Safety Report 15406673 (Version 1)
Quarter: 2018Q3

REPORT INFORMATION
  Report Type: Spontaneous
  Country: US (occurrence: US)
  Receive Date: 20180912
  Receipt Date: 20180912
  Transmission Date: 20181010
  Serious: No
  Sender: FDA-Public Use
  Company Number: None

PATIENT
  Sex: Male

DRUGS (1)
  1. CAPECITABINE 500MG TEVA PHARMACEUTICALS USA INC [Suspect]
     Active Substance: CAPECITABINE
     Indication: COLON CANCER
     Dosage: 1000 MG // 1500 MG EVERY MORNING/EVE  BY MOUTH?
     Route: 048
     Dates: start: 20180608, end: 201808

REACTIONS (4)
  - Skin discolouration [None]
  - Dry skin [None]
  - Skin exfoliation [None]
  - Pruritus [None]
